FAERS Safety Report 14048393 (Version 1)
Quarter: 2017Q4

REPORT INFORMATION
  Report Type: Spontaneous
  Country: FR (occurrence: FR)
  Receive Date: 20171005
  Receipt Date: 20171005
  Transmission Date: 20180321
  Serious: Yes (Other)
  Sender: FDA-Public Use
  Company Number: PHHY2017FR143763

PATIENT
  Age: 70 Year
  Sex: Female

DRUGS (4)
  1. SIFROL [Suspect]
     Active Substance: PRAMIPEXOLE
     Dosage: 1.05 MG, QD
     Route: 048
  2. STALEVO [Suspect]
     Active Substance: CARBIDOPA\ENTACAPONE\LEVODOPA
     Indication: PARKINSON^S DISEASE
     Dosage: 600 MG, QD
     Route: 048
  3. APOKINON [Suspect]
     Active Substance: APOMORPHINE
     Indication: PARKINSON^S DISEASE
     Dosage: 21 MG, QD
     Route: 058
  4. SIFROL [Suspect]
     Active Substance: PRAMIPEXOLE
     Indication: PARKINSON^S DISEASE
     Dosage: 2.1 MG, QD
     Route: 048

REACTIONS (4)
  - Pollakiuria [Recovering/Resolving]
  - Memory impairment [Recovering/Resolving]
  - Confusional state [Recovering/Resolving]
  - Speech disorder [Recovering/Resolving]

NARRATIVE: CASE EVENT DATE: 20170707
